FAERS Safety Report 4417653-4 (Version None)
Quarter: 2004Q2

REPORT INFORMATION
  Report Type: 
  Country: None (occurrence: None)
  Receive Date: 20040625
  Receipt Date: 20040514
  Transmission Date: 20050107
  Serious: Yes (Hospitalization)
  Sender: FDA-Public Use
  Company Number: 206296

PATIENT
  Age: 55 Year
  Sex: Male
  Weight: 73.5 kg

DRUGS (4)
  1. AVASTIN [Suspect]
     Indication: COLORECTAL CANCER METASTATIC
     Dosage: 375 MG, Q2W, INTRAVENOUS
     Route: 042
     Dates: start: 20040310, end: 20040412
  2. ELOXATIN [Concomitant]
  3. FLUOROURACIL [Concomitant]
  4. LEUCOVORIN CALCIUM [Concomitant]

REACTIONS (1)
  - GASTROINTESTINAL PERFORATION [None]
